FAERS Safety Report 4693714-X (Version None)
Quarter: 2005Q2

REPORT INFORMATION
  Report Type: 
  Country: None (occurrence: None)
  Receive Date: 20050615
  Receipt Date: 20050531
  Transmission Date: 20051028
  Serious: Yes (Hospitalization, Other)
  Sender: FDA-Public Use
  Company Number: USA050598404

PATIENT
  Age: 77 Year
  Sex: Female

DRUGS (19)
  1. FORTEO [Suspect]
     Indication: OSTEOPOROSIS
     Dates: start: 20040101, end: 20050401
  2. ACTOS [Concomitant]
  3. MULTI-VITAMIN [Concomitant]
  4. TAMBOCOR [Concomitant]
  5. NEXIUM [Concomitant]
  6. ZETIA [Concomitant]
  7. ALDACTONE [Concomitant]
  8. MIRAPEX [Concomitant]
  9. ACTONEL [Concomitant]
  10. GLUCOTROL [Concomitant]
  11. HYDROCHLOROTHIAZIDE [Concomitant]
  12. XALATAN [Concomitant]
  13. ALPHAGAN [Concomitant]
  14. ADVAIR [Concomitant]
  15. XOPENEX [Concomitant]
  16. ASPIRIN [Concomitant]
  17. PLAVIX [Concomitant]
  18. PREDNISONE TAB [Concomitant]
  19. VICODIN [Concomitant]

REACTIONS (11)
  - ANAEMIA [None]
  - BLOOD UREA INCREASED [None]
  - DYSPNOEA [None]
  - GASTRITIS [None]
  - GASTROINTESTINAL ARTERIOVENOUS MALFORMATION [None]
  - GASTROINTESTINAL HAEMORRHAGE [None]
  - HYPERLIPIDAEMIA [None]
  - MYOCARDIAL ISCHAEMIA [None]
  - PHARMACEUTICAL PRODUCT COMPLAINT [None]
  - RESTLESS LEGS SYNDROME [None]
  - VARICOSE VEIN [None]
